FAERS Safety Report 5445400-6 (Version None)
Quarter: 2007Q3

REPORT INFORMATION
  Report Type: 
  Country: None (occurrence: None)
  Receive Date: 20070906
  Receipt Date: 20070614
  Transmission Date: 20080115
  Serious: No
  Sender: FDA-Public Use
  Company Number: A0656614A

PATIENT
  Age: 79 Year
  Sex: Female

DRUGS (8)
  1. REQUIP [Suspect]
     Indication: RESTLESS LEGS SYNDROME
     Dosage: 2MG PER DAY
     Route: 048
     Dates: start: 20070401
  2. SEROQUEL [Concomitant]
  3. LEXAPRO [Concomitant]
  4. DIOVAN [Concomitant]
  5. CALCIUM SUPPLEMENTS [Concomitant]
  6. CHONDROITIN [Concomitant]
  7. DYAZIDE [Concomitant]
  8. GLUCOSAMINE [Concomitant]

REACTIONS (4)
  - DEPRESSION [None]
  - ELEVATED MOOD [None]
  - PSYCHOMOTOR HYPERACTIVITY [None]
  - THERAPEUTIC RESPONSE UNEXPECTED [None]
